FAERS Safety Report 6212004-7 (Version None)
Quarter: 2009Q2

REPORT INFORMATION
  Report Type: 
  Country: None (occurrence: None)
  Receive Date: 20090602
  Receipt Date: 20090527
  Transmission Date: 20091009
  Serious: Yes (Life-Threatening)
  Sender: FDA-Public Use
  Company Number: PL-AVENTIS-200915403GDDC

PATIENT
  Age: 49 Year
  Sex: Female

DRUGS (5)
  1. DOCETAXEL [Suspect]
     Route: 042
     Dates: start: 20090513, end: 20090513
  2. ADRIBLASTINA [Concomitant]
     Route: 042
     Dates: start: 20090513, end: 20090513
  3. ATOSSA [Concomitant]
     Route: 042
     Dates: start: 20090513, end: 20090513
  4. METOCLOPRAMIDE [Concomitant]
     Route: 042
     Dates: start: 20090513, end: 20090513
  5. DEXAVEN [Concomitant]
     Route: 042
     Dates: start: 20090513, end: 20090513

REACTIONS (6)
  - ANXIETY [None]
  - BLOOD PRESSURE INCREASED [None]
  - DYSPNOEA [None]
  - ERYTHEMA [None]
  - HYPERHIDROSIS [None]
  - SCOTOMA [None]
